FAERS Safety Report 19926375 (Version 2)
Quarter: 2022Q1

REPORT INFORMATION
  Report Type: Spontaneous
  Country: CA (occurrence: CA)
  Receive Date: 20211007
  Receipt Date: 20220302
  Transmission Date: 20220423
  Serious: Yes (Other)
  Sender: FDA-Public Use
  Company Number: CA-JNJFOC-20210959707

PATIENT
  Age: 10 Year
  Sex: Female

DRUGS (14)
  1. SPORANOX [Suspect]
     Active Substance: ITRACONAZOLE
     Indication: Histoplasmosis disseminated
     Route: 065
  2. ACETAMINOPHEN [Suspect]
     Active Substance: ACETAMINOPHEN
     Indication: Drug toxicity prophylaxis
     Route: 065
  3. ABACAVIR [Suspect]
     Active Substance: ABACAVIR
     Indication: Antiviral treatment
     Route: 065
  4. AMPHOTERICIN B [Suspect]
     Active Substance: AMPHOTERICIN B
     Indication: Histoplasmosis disseminated
     Route: 065
  5. AMPHOTERICIN B [Suspect]
     Active Substance: AMPHOTERICIN B
     Route: 065
  6. CHLORPHENIRAMINE [Suspect]
     Active Substance: CHLORPHENIRAMINE
     Indication: Drug toxicity prophylaxis
     Route: 065
  7. EFAVIRENZ [Suspect]
     Active Substance: EFAVIRENZ
     Indication: Antiviral treatment
     Route: 065
  8. LAMIVUDINE [Suspect]
     Active Substance: LAMIVUDINE
     Indication: Antiviral treatment
     Route: 065
  9. LOPINAVIR\RITONAVIR [Suspect]
     Active Substance: LOPINAVIR\RITONAVIR
     Indication: Antiviral treatment
     Route: 065
  10. MEPERIDINE [Suspect]
     Active Substance: MEPERIDINE
     Indication: Drug toxicity prophylaxis
     Route: 065
  11. MEPERIDINE [Suspect]
     Active Substance: MEPERIDINE
     Indication: Chills
  12. MEPERIDINE [Suspect]
     Active Substance: MEPERIDINE
     Indication: Analgesic therapy
  13. TIVICAY [Suspect]
     Active Substance: DOLUTEGRAVIR SODIUM
     Indication: Antiviral treatment
     Route: 065
  14. ZIDOVUDINE [Suspect]
     Active Substance: ZIDOVUDINE
     Indication: Antiviral treatment
     Route: 065

REACTIONS (3)
  - Nephropathy toxic [Recovered/Resolved]
  - Chills [Recovered/Resolved]
  - Disease recurrence [Recovered/Resolved]
